FAERS Safety Report 4537930-6 (Version None)
Quarter: 2004Q4

REPORT INFORMATION
  Report Type: 
  Country: None (occurrence: None)
  Receive Date: 20041220
  Receipt Date: 20041117
  Transmission Date: 20050328
  Serious: Yes (Hospitalization)
  Sender: FDA-Public Use
  Company Number: 200410203BBE

PATIENT
  Age: 58 Year
  Sex: Female
  Weight: 86.8 kg

DRUGS (13)
  1. GAMUNEX [Suspect]
     Dosage: SEE IMAGE
     Route: 042
     Dates: start: 20030725
  2. GAMUNEX [Suspect]
     Dosage: SEE IMAGE
     Route: 042
     Dates: start: 20030828
  3. PROGRAF [Concomitant]
  4. CELLCEPT [Concomitant]
  5. PREDNISONE [Concomitant]
  6. VALCYTE [Concomitant]
  7. BACTRIM [Concomitant]
  8. RANITIDINE [Concomitant]
  9. LEVAQUIN [Concomitant]
  10. NYSTATIN [Concomitant]
  11. OXYCODONE HCL [Concomitant]
  12. DOCUSATE [Concomitant]
  13. ZOSYN [Concomitant]

REACTIONS (5)
  - KIDNEY TRANSPLANT REJECTION [None]
  - PERITONITIS [None]
  - PYREXIA [None]
  - TREMOR [None]
  - URINE OUTPUT DECREASED [None]
